FAERS Safety Report 9351905 (Version 1)
Quarter: 2013Q2

REPORT INFORMATION
  Report Type: Report from Study
  Country: US (occurrence: US)
  Receive Date: 20130617
  Receipt Date: 20130617
  Transmission Date: 20140414
  Serious: Yes (Hospitalization)
  Sender: FDA-Public Use
  Company Number: US-GLAXOSMITHKLINE-A1027312A

PATIENT
  Age: 78 Year
  Sex: Male

DRUGS (12)
  1. PAZOPANIB [Suspect]
     Indication: RENAL CANCER METASTATIC
     Dosage: 800MG PER DAY
     Route: 048
     Dates: start: 20130418, end: 20130611
  2. HYDROCHLOROTHIAZIDE [Concomitant]
     Dates: start: 1992
  3. BIMATOPROST [Concomitant]
     Dates: start: 2010
  4. PRIMIDONE [Concomitant]
     Dates: start: 201206
  5. LORAZEPAM [Concomitant]
     Dates: start: 20121109
  6. TAMSULOSIN [Concomitant]
     Dates: start: 201207
  7. MULTIVITAMIN [Concomitant]
     Dates: start: 1987
  8. HALCINONIDE [Concomitant]
     Dates: start: 1992
  9. PROCHLORPERAZINE [Concomitant]
     Dates: start: 20121109
  10. LEVOTHYROXINE [Concomitant]
     Dates: start: 20121112
  11. MOMETASONE FUROATE [Concomitant]
     Dates: start: 20130501
  12. PRIMIDONE [Concomitant]
     Dates: start: 20130529

REACTIONS (4)
  - Muscular weakness [Unknown]
  - Bone pain [Unknown]
  - Dizziness [Unknown]
  - Fall [Unknown]
